FAERS Safety Report 8842186 (Version 1)
Quarter: 2012Q4

REPORT INFORMATION
  Report Type: 
  Country: US (occurrence: None)
  Receive Date: 20121015
  Receipt Date: 20121015
  Transmission Date: 20130627
  Serious: Yes (Hospitalization)
  Sender: FDA-Public Use
  Company Number: None

PATIENT
  Sex: Male
  Weight: 14.4 kg

DRUGS (3)
  1. DAUNORUBICIN [Suspect]
     Dates: end: 20121003
  2. DEXAMETHASONE [Suspect]
     Dates: end: 20121002
  3. PEG-L-ASPARAGINASE [Suspect]
     Dates: end: 20120921

REACTIONS (7)
  - Febrile neutropenia [None]
  - Device related infection [None]
  - Staphylococcal infection [None]
  - Mucosal infection [None]
  - Pulmonary mass [None]
  - Infective glossitis [None]
  - Aspergillus test positive [None]
